FAERS Safety Report 5254221-9 (Version None)
Quarter: 2007Q1

REPORT INFORMATION
  Report Type: 
  Country: None (occurrence: None)
  Receive Date: 20070302
  Receipt Date: 20070301
  Transmission Date: 20070707
  Serious: Yes (Other)
  Sender: FDA-Public Use
  Company Number: US-GLAXOSMITHKLINE-A0635060A

PATIENT
  Age: 56 Year
  Sex: Female

DRUGS (5)
  1. LAMICTAL [Suspect]
  2. EFFEXOR [Concomitant]
     Dosage: 150MG PER DAY
     Route: 048
  3. ADDERALL 10 [Concomitant]
     Dosage: 20MG PER DAY
  4. SEROQUEL [Concomitant]
  5. CLONAZEPAM [Concomitant]

REACTIONS (6)
  - ATTENTION DEFICIT/HYPERACTIVITY DISORDER [None]
  - BIPOLAR DISORDER [None]
  - CRYING [None]
  - DEPRESSED MOOD [None]
  - DEPRESSION [None]
  - SUICIDAL IDEATION [None]
